FAERS Safety Report 22020086 (Version 5)
Quarter: 2024Q4

REPORT INFORMATION
  Report Type: Spontaneous
  Country: FR (occurrence: FR)
  Receive Date: 20230222
  Receipt Date: 20241007
  Transmission Date: 20250115
  Serious: Yes (Hospitalization, Other)
  Sender: SANOFI AVENTIS
  Company Number: None

PATIENT
  Age: 65 Year
  Sex: Female

DRUGS (12)
  1. ENOXAPARIN SODIUM [Suspect]
     Active Substance: ENOXAPARIN SODIUM
     Indication: Thrombosis prophylaxis
     Dosage: UNK
     Route: 058
  2. LOPERAMIDE HYDROCHLORIDE [Suspect]
     Active Substance: LOPERAMIDE HYDROCHLORIDE
     Indication: Prophylaxis against diarrhoea
     Dosage: 3 G, QD
     Route: 048
  3. LEVETIRACETAM [Suspect]
     Active Substance: LEVETIRACETAM
     Indication: Epilepsy
     Dosage: 2500 MG, QD
     Route: 048
     Dates: start: 20221207
  4. LEVETIRACETAM [Suspect]
     Active Substance: LEVETIRACETAM
     Dosage: 2000 MG QD
     Dates: start: 20221124
  5. LEVETIRACETAM [Suspect]
     Active Substance: LEVETIRACETAM
     Dosage: 1500 MG QD
  6. LEVETIRACETAM [Suspect]
     Active Substance: LEVETIRACETAM
     Dosage: 1000 MG QD
     Dates: start: 202011
  7. CAPECITABINE [Suspect]
     Active Substance: CAPECITABINE
     Indication: Osteoporotic fracture
     Dosage: 2600 MG, QD (THIRD-LINE TREATMENT)
     Route: 048
  8. TRASTUZUMAB [Suspect]
     Active Substance: TRASTUZUMAB
     Indication: Product used for unknown indication
     Dosage: UNK (THIRD-LINE TREATMENT)
     Route: 042
     Dates: start: 202005, end: 202104
  9. RACECADOTRIL [Suspect]
     Active Substance: RACECADOTRIL
     Indication: Prophylaxis against diarrhoea
     Route: 048
  10. TUKYSA [Suspect]
     Active Substance: TUCATINIB
     Indication: Targeted cancer therapy
     Dosage: 600 MG, QD (THIRD-LINE TEATMENT)
     Route: 048
  11. ECONAZOLE [Concomitant]
     Active Substance: ECONAZOLE
  12. ECONAZOLE [Concomitant]
     Active Substance: ECONAZOLE

REACTIONS (6)
  - Epilepsy [Recovering/Resolving]
  - Confusional state [Recovering/Resolving]
  - Coma [Unknown]
  - Hypercapnia [Unknown]
  - Status epilepticus [Recovering/Resolving]
  - Product use in unapproved indication [Unknown]

NARRATIVE: CASE EVENT DATE: 20221114
